FAERS Safety Report 15983812 (Version 1)
Quarter: 2019Q1

REPORT INFORMATION
  Report Type: Spontaneous
  Country: IT (occurrence: IT)
  Receive Date: 20190220
  Receipt Date: 20190220
  Transmission Date: 20190418
  Serious: Yes (Disabling, Other)
  Sender: FDA-Public Use
  Company Number: IT-ACCORD-107508

PATIENT
  Age: 66 Year
  Sex: Male

DRUGS (4)
  1. SIMVASTATIN. [Suspect]
     Active Substance: SIMVASTATIN
     Indication: PRODUCT USED FOR UNKNOWN INDICATION
     Route: 065
  2. INFLUENZA VIRUS VACCINE POLYVA [Concomitant]
     Active Substance: INFLUENZA VIRUS VACCINE
     Indication: IMMUNISATION
     Route: 065
  3. FISH OIL [Concomitant]
     Active Substance: FISH OIL
     Route: 065
  4. CALCIUM/COLECALCIFEROL [Concomitant]
     Route: 065

REACTIONS (31)
  - Hyperlipidaemia [Unknown]
  - Guillain-Barre syndrome [Unknown]
  - Musculoskeletal pain [Unknown]
  - Joint swelling [Unknown]
  - Low density lipoprotein increased [Unknown]
  - Impaired work ability [Unknown]
  - Paraesthesia [Unknown]
  - Muscular weakness [Unknown]
  - Myopathy [Unknown]
  - Musculoskeletal discomfort [Unknown]
  - Joint stiffness [Unknown]
  - Myalgia [Unknown]
  - Erythema [Unknown]
  - Muscle atrophy [Unknown]
  - Rotator cuff syndrome [Unknown]
  - Injected limb mobility decreased [Unknown]
  - Neuropathy peripheral [Unknown]
  - Polyneuropathy [Unknown]
  - Back pain [Unknown]
  - Spinal osteoarthritis [Unknown]
  - Snoring [Unknown]
  - Disability [Unknown]
  - Synovial disorder [Unknown]
  - Arthritis [Unknown]
  - Arthralgia [Unknown]
  - Pruritus [Unknown]
  - Insomnia [Unknown]
  - Depressed mood [Unknown]
  - Fatigue [Unknown]
  - Swelling [Unknown]
  - Dyspnoea [Unknown]
